FAERS Safety Report 13688574 (Version 1)
Quarter: 2017Q2

REPORT INFORMATION
  Report Type: Spontaneous
  Country: US (occurrence: US)
  Receive Date: 20170623
  Receipt Date: 20170623
  Transmission Date: 20170830
  Serious: Yes (Disabling)
  Sender: FDA-Public Use
  Company Number: None

PATIENT
  Age: 50 Year
  Sex: Male
  Weight: 85.5 kg

DRUGS (9)
  1. LORAZEPAM. [Suspect]
     Active Substance: LORAZEPAM
     Indication: INSOMNIA
     Route: 048
     Dates: start: 20000101, end: 20120508
  2. FISH OIL [Concomitant]
     Active Substance: FISH OIL
  3. NIACIN. [Concomitant]
     Active Substance: NIACIN
  4. VITAMIN D [Concomitant]
     Active Substance: CHOLECALCIFEROL
  5. MELATONIN [Concomitant]
     Active Substance: MELATONIN
  6. DIAZEPAM. [Concomitant]
     Active Substance: DIAZEPAM
  7. MIRTAZAPINE. [Concomitant]
     Active Substance: MIRTAZAPINE
  8. SIMETHICONE (DIMETHICONE) [Concomitant]
     Active Substance: DIMETHICONE
  9. VITAMIN E [Concomitant]
     Active Substance: .ALPHA.-TOCOPHEROL

REACTIONS (7)
  - Panic attack [None]
  - Impaired work ability [None]
  - Drug tolerance [None]
  - Mental disorder [None]
  - Asthenia [None]
  - Irritable bowel syndrome [None]
  - General physical condition abnormal [None]

NARRATIVE: CASE EVENT DATE: 20120508
